FAERS Safety Report 6044374 (Version 11)
Quarter: 2013Q4

REPORT INFORMATION
  Report Type: Spontaneous
  Country: US (occurrence: US)
  Receive Date: 20060512
  Receipt Date: 20131113
  Transmission Date: 20140711
  Serious: Yes (Other)
  Sender: FDA-Public Use
  Company Number: US-ROCHE-433851

PATIENT
  Age: 26 Year
  Sex: Male
  Weight: 77.1 kg

DRUGS (6)
  1. ACCUTANE [Suspect]
     Indication: ACNE
     Route: 048
     Dates: start: 1996, end: 1999
  2. ACCUTANE [Suspect]
     Route: 048
     Dates: start: 20020307, end: 20020608
  3. TYLENOL [Concomitant]
  4. TUMS [Concomitant]
     Indication: ABDOMINAL PAIN
  5. ZOLOFT [Concomitant]
     Indication: DEPRESSION
     Route: 065
  6. METHAMPHETAMINE [Concomitant]
     Route: 065
     Dates: start: 2001, end: 2004

REACTIONS (15)
  - Inflammatory bowel disease [Unknown]
  - Suicidal ideation [Unknown]
  - Depression [Not Recovered/Not Resolved]
  - Colitis [Unknown]
  - Anal fistula [Unknown]
  - Suicide attempt [Unknown]
  - Bipolar disorder [Not Recovered/Not Resolved]
  - HIV infection [Unknown]
  - Psychotic disorder [Unknown]
  - Mania [Unknown]
  - Irritable bowel syndrome [Unknown]
  - Blood triglycerides increased [Unknown]
  - Epistaxis [Unknown]
  - Skin haemorrhage [Unknown]
  - Anxiety [Not Recovered/Not Resolved]
